FAERS Safety Report 14814791 (Version 1)
Quarter: 2018Q2

REPORT INFORMATION
  Report Type: Spontaneous
  Country: US (occurrence: US)
  Receive Date: 20180417
  Receipt Date: 20180417
  Transmission Date: 20180711
  Serious: No
  Sender: FDA-Public Use
  Company Number: None

PATIENT
  Age: 44 Year
  Sex: Female

DRUGS (1)
  1. HUMIRA [Suspect]
     Active Substance: ADALIMUMAB
     Indication: PSORIASIS
     Dosage: 40MG EVERY 2 WEEKS, AFTER TITRATION SUB Q
     Route: 058
     Dates: start: 20180209, end: 20180331

REACTIONS (4)
  - Psoriasis [None]
  - Refusal of treatment by patient [None]
  - Back pain [None]
  - Neck mass [None]

NARRATIVE: CASE EVENT DATE: 20180301
